FAERS Safety Report 5381198-8 (Version None)
Quarter: 2007Q3

REPORT INFORMATION
  Report Type: 
  Country: None (occurrence: None)
  Receive Date: 20070706
  Receipt Date: 20070626
  Transmission Date: 20080115
  Serious: Yes (Hospitalization, Other)
  Sender: FDA-Public Use
  Company Number: FR-PFIZER INC-2007052793

PATIENT
  Age: 73 Year
  Sex: Male

DRUGS (7)
  1. ATORVASTATIN CALCIUM [Suspect]
     Route: 048
  2. PREVISCAN [Interacting]
     Indication: ATRIAL FIBRILLATION
     Route: 048
     Dates: start: 20070525, end: 20070531
  3. ALLOPURINOL [Interacting]
     Route: 048
  4. AMBROXOL [Concomitant]
  5. BISOPROLOL FUMARATE [Concomitant]
     Route: 048
  6. DIFRAREL [Concomitant]
     Route: 048
  7. BAMBUTEROL HYDROCHLORIDE [Concomitant]
     Route: 048

REACTIONS (4)
  - DRUG INTERACTION [None]
  - DRUG TOXICITY [None]
  - EPISTAXIS [None]
  - MELAENA [None]
